FAERS Safety Report 12207443 (Version 2)
Quarter: 2016Q2

REPORT INFORMATION
  Report Type: Report from Study
  Country: TR (occurrence: TR)
  Receive Date: 20160324
  Receipt Date: 20160426
  Transmission Date: 20160815
  Serious: Yes (Other)
  Sender: FDA-Public Use
  Company Number: TR-PFIZER INC-2015163009

PATIENT
  Age: 46 Year
  Sex: Female
  Weight: 75 kg

DRUGS (5)
  1. PALBOCICLIB [Suspect]
     Active Substance: PALBOCICLIB
     Indication: BREAST CANCER METASTATIC
     Dosage: 125 MG, CYCLIC (3 WEEKS ON, 1 WEEK OFF)
     Route: 048
     Dates: start: 20150416
  2. FEMARA [Concomitant]
     Active Substance: LETROZOLE
     Dosage: UNK, 1X/DAY
     Route: 048
     Dates: start: 20150416
  3. ZOLADEX [Concomitant]
     Active Substance: GOSERELIN ACETATE
     Dosage: 3.6 MG, ONCE IN 28 DAYS
     Route: 058
     Dates: start: 20150417
  4. ZOMETA [Concomitant]
     Active Substance: ZOLEDRONIC ACID
     Dosage: 4 MG, ONCE IN 28 DAYS
     Route: 042
     Dates: start: 20150511
  5. ZOMETA [Concomitant]
     Active Substance: ZOLEDRONIC ACID
     Indication: METASTASES TO BONE
     Dosage: 4 MG, ONCE IN 28 DAYS
     Route: 042
     Dates: start: 20140317, end: 20150106

REACTIONS (3)
  - Neutropenia [Recovered/Resolved]
  - Hepatic enzyme increased [Unknown]
  - Thrombocytopenia [Unknown]

NARRATIVE: CASE EVENT DATE: 20150511
